FAERS Safety Report 8312588-9 (Version None)
Quarter: 2012Q2

REPORT INFORMATION
  Report Type: 
  Country: None (occurrence: None)
  Receive Date: 20120424
  Receipt Date: 20120417
  Transmission Date: 20120825
  Serious: Yes (Life-Threatening, Disabling)
  Sender: FDA-Public Use
  Company Number: 2012SP010505

PATIENT
  Age: 29 Year
  Sex: Female

DRUGS (1)
  1. NOXAFIL [Suspect]
     Indication: ASPERGILLOSIS

REACTIONS (3)
  - APPARENT LIFE THREATENING EVENT [None]
  - FUNGAL INFECTION [None]
  - PARALYSIS [None]
